FAERS Safety Report 6927997-X (Version None)
Quarter: 2010Q3

REPORT INFORMATION
  Report Type: 
  Country: None (occurrence: None)
  Receive Date: 20100817
  Receipt Date: 20100809
  Transmission Date: 20110219
  Serious: Yes (Hospitalization)
  Sender: FDA-Public Use
  Company Number: CA-B.I. PHARMACEUTICALS,INC./RIDGEFIELD-2008-CN-00240CN

PATIENT
  Sex: Female

DRUGS (23)
  1. AGGRENOX [Suspect]
     Route: 048
     Dates: start: 20071225, end: 20080102
  2. COLACE [Concomitant]
     Dosage: 100 MG
     Route: 048
  3. DIAZIDE [Concomitant]
  4. DOMPERIDONE [Concomitant]
     Dosage: TID + HS
  5. RABEPRAZOLE SODIUM [Concomitant]
  6. GRAVOL TAB [Concomitant]
     Dosage: 25-50MG Q6H PRN
     Route: 048
  7. LIPITOR [Concomitant]
  8. ALTACE [Concomitant]
     Dosage: 5 MG
     Route: 048
  9. LOVENOX [Concomitant]
  10. CYANCOBALAMIN [Concomitant]
  11. ACETAMINOPHEN [Concomitant]
  12. CELEBREX [Concomitant]
     Dosage: 100 MG
     Route: 048
  13. SODIUM PHOSPHATES [Concomitant]
  14. ENOXAPARIN SODIUM [Concomitant]
     Dosage: 40 MG
     Route: 058
  15. TRIAMTERENE AND HYDROCHLOROTHIAZIDE [Concomitant]
     Dosage: 1 TAB OD
     Route: 048
  16. TRIAMTERENE AND HYDROCHLOROTHIAZIDE [Concomitant]
     Dosage: 0.5 NR
     Route: 048
  17. NORMAL SALINE [Concomitant]
     Route: 042
  18. LANSOPRAZOLE [Concomitant]
     Dosage: 30 MG
     Route: 048
  19. RABEPRAZOLE SODIUM [Concomitant]
     Dosage: 20 MG
     Route: 048
  20. ATORVASTATIN [Concomitant]
     Dosage: 80 MG
     Route: 048
  21. ACETAMINOPHEN [Concomitant]
     Dosage: 1-2 Q4H PRN
     Route: 048
  22. LAXATIVE [Concomitant]
  23. OXAZEPAM [Concomitant]
     Dosage: 15 MG

REACTIONS (4)
  - MALAISE [None]
  - NAUSEA [None]
  - RENAL FAILURE ACUTE [None]
  - VOMITING [None]
